FAERS Safety Report 4392670-1 (Version None)
Quarter: 2004Q3

REPORT INFORMATION
  Report Type: 
  Country: None (occurrence: None)
  Receive Date: 20040702
  Receipt Date: 20040616
  Transmission Date: 20050211
  Serious: Yes (Hospitalization)
  Sender: FDA-Public Use
  Company Number: DSA_24004_2004

PATIENT
  Age: 82 Year
  Sex: Male
  Weight: 72 kg

DRUGS (3)
  1. KEIMAX [Suspect]
     Indication: BRONCHITIS
     Dosage: 400 MG QD PO
     Route: 048
     Dates: start: 20031009, end: 20031019
  2. ACETYLCYSTEINE [Concomitant]
  3. ACETAMINOPHEN [Concomitant]

REACTIONS (1)
  - EPILEPSY [None]
